FAERS Safety Report 25222352 (Version 2)
Quarter: 2025Q2

REPORT INFORMATION
  Report Type: Spontaneous
  Country: JP (occurrence: JP)
  Receive Date: 20250421
  Receipt Date: 20250522
  Transmission Date: 20250716
  Serious: Yes (Life-Threatening, Hospitalization)
  Sender: MERCK SHARP & DOHME LLC
  Company Number: JP-009507513-2277685

PATIENT
  Age: 75 Year
  Sex: Male

DRUGS (3)
  1. CUBICIN [Suspect]
     Active Substance: DAPTOMYCIN
     Indication: Vascular device infection
     Route: 041
  2. VANCOMYCIN [Concomitant]
     Active Substance: VANCOMYCIN
     Indication: Vascular device infection
  3. MEROPENEM [Concomitant]
     Active Substance: MEROPENEM
     Indication: Vascular device infection

REACTIONS (1)
  - Thrombotic thrombocytopenic purpura [Recovered/Resolved]
